FAERS Safety Report 17697618 (Version 1)
Quarter: 2020Q2

REPORT INFORMATION
  Report Type: Spontaneous
  Country: PT (occurrence: PT)
  Receive Date: 20200423
  Receipt Date: 20200423
  Transmission Date: 20200714
  Serious: Yes (Life-Threatening, Hospitalization, Other)
  Sender: FDA-Public Use
  Company Number: PT-ACCORD-179325

PATIENT
  Age: 49 Year
  Sex: Male

DRUGS (3)
  1. COLCHICINE. [Concomitant]
     Active Substance: COLCHICINE
     Indication: OLIGOARTHRITIS
  2. ALLOPURINOL. [Suspect]
     Active Substance: ALLOPURINOL
     Indication: OLIGOARTHRITIS
  3. PREDNISOLONE. [Concomitant]
     Active Substance: PREDNISOLONE
     Indication: OLIGOARTHRITIS

REACTIONS (5)
  - Type IV hypersensitivity reaction [Recovered/Resolved]
  - Muscle necrosis [Recovered/Resolved]
  - Myositis [Recovered/Resolved]
  - Atrioventricular block complete [Recovered/Resolved]
  - Drug reaction with eosinophilia and systemic symptoms [Recovered/Resolved]
